FAERS Safety Report 6042959-5 (Version None)
Quarter: 2009Q1

REPORT INFORMATION
  Report Type: 
  Country: None (occurrence: None)
  Receive Date: 20090119
  Receipt Date: 20090114
  Transmission Date: 20090719
  Serious: Yes (Hospitalization)
  Sender: FDA-Public Use
  Company Number: DE-ABBOTT-08P-062-0493542-00

PATIENT
  Sex: Male

DRUGS (5)
  1. HUMIRA [Suspect]
     Indication: CROHN'S DISEASE
     Dates: start: 20071214, end: 20081112
  2. CORTISON [Concomitant]
     Indication: DRUG USE FOR UNKNOWN INDICATION
  3. BRETISON [Concomitant]
     Indication: DRUG USE FOR UNKNOWN INDICATION
  4. IMUREX [Concomitant]
     Indication: DRUG USE FOR UNKNOWN INDICATION
  5. ANTIBIOTICS [Concomitant]
     Indication: CROHN'S DISEASE

REACTIONS (2)
  - ABSCESS INTESTINAL [None]
  - ACUTE ABDOMEN [None]
